FAERS Safety Report 5630110-2 (Version None)
Quarter: 2008Q1

REPORT INFORMATION
  Report Type: 
  Country: None (occurrence: None)
  Receive Date: 20080218
  Receipt Date: 20080208
  Transmission Date: 20080703
  Serious: Yes (Hospitalization)
  Sender: FDA-Public Use
  Company Number: PHHO2008FR02244

PATIENT
  Age: 56 Year
  Sex: Female
  Weight: 71.5 kg

DRUGS (2)
  1. DAFLON (DIOSMIN) [Concomitant]
     Indication: PHLEBITIS
  2. AMN107 [Suspect]
     Indication: CHRONIC MYELOID LEUKAEMIA
     Dosage: 400 MG, BID
     Route: 048
     Dates: start: 20051207, end: 20080207

REACTIONS (1)
  - MYOCARDIAL INFARCTION [None]
